FAERS Safety Report 24303685 (Version 1)
Quarter: 2024Q3

REPORT INFORMATION
  Report Type: Spontaneous
  Country: GR (occurrence: None)
  Receive Date: 20240910
  Receipt Date: 20240910
  Transmission Date: 20241017
  Serious: Yes (Other)
  Sender: ASTRAZENECA
  Company Number: 2024A204132

PATIENT
  Age: 78 Year
  Sex: Female

DRUGS (1)
  1. BENRALIZUMAB [Suspect]
     Active Substance: BENRALIZUMAB
     Indication: Asthma
     Dosage: 30MG S.C. EVERY 4 WEEKS FOR 3 DOSES AND THEN EVERY 8 WEEKS
     Route: 058

REACTIONS (1)
  - Pemphigoid [Unknown]
